FAERS Safety Report 5205892-4 (Version None)
Quarter: 2006Q4

REPORT INFORMATION
  Report Type: 
  Country: None (occurrence: None)
  Receive Date: 20061027
  Receipt Date: 20060822
  Transmission Date: 20070319
  Serious: No
  Sender: FDA-Public Use
  Company Number: 012443

PATIENT
  Age: 64 Year
  Sex: Female

DRUGS (10)
  1. PRIALT [Suspect]
     Indication: PAIN
     Dosage: SEE IMAGE
     Route: 037
     Dates: start: 20060811, end: 20060814
  2. PRIALT [Suspect]
     Indication: PAIN
     Dosage: SEE IMAGE
     Route: 037
     Dates: start: 20060814, end: 20060816
  3. PRIALT [Suspect]
     Indication: PAIN
     Dosage: SEE IMAGE
     Route: 037
     Dates: start: 20060816, end: 20060817
  4. HYDROMORPHONE HCL [Concomitant]
  5. CLONIDINE [Concomitant]
  6. BUPIVACAINE [Concomitant]
  7. CYMBALTA [Concomitant]
  8. MORPHINE [Concomitant]
  9. PHENERGAN [Concomitant]
  10. BACLOFEN [Concomitant]

REACTIONS (1)
  - URTICARIA [None]
